FAERS Safety Report 6048325-0 (Version None)
Quarter: 2009Q1

REPORT INFORMATION
  Report Type: 
  Country: None (occurrence: None)
  Receive Date: 20090123
  Receipt Date: 20090112
  Transmission Date: 20090719
  Serious: Yes (Congenital Anomaly)
  Sender: FDA-Public Use
  Company Number: FR-PFIZER INC-2009155396

PATIENT

DRUGS (3)
  1. LYRICA [Suspect]
     Dosage: 300 MG; 150 MG
     Route: 064
     Dates: end: 20070201
  2. IXEL [Suspect]
     Dosage: 50 MG, UNK
     Route: 064
     Dates: end: 20070201
  3. ATARAX [Suspect]
     Dosage: 25 MG, UNK
     Route: 064
     Dates: end: 20070201

REACTIONS (2)
  - DRUG EXPOSURE DURING PREGNANCY [None]
  - LIMB MALFORMATION [None]
